FAERS Safety Report 10302543 (Version 1)
Quarter: 2014Q3

REPORT INFORMATION
  Report Type: Spontaneous
  Country: JP (occurrence: JP)
  Receive Date: 20140714
  Receipt Date: 20140714
  Transmission Date: 20150326
  Serious: Yes (Other)
  Sender: FDA-Public Use
  Company Number: PHHY2012JP132181

PATIENT

DRUGS (1)
  1. GLIVEC [Suspect]
     Active Substance: IMATINIB MESYLATE

REACTIONS (2)
  - Gastrointestinal disorder [Unknown]
  - Subdural haemorrhage [Unknown]
